FAERS Safety Report 7464929-2 (Version None)
Quarter: 2011Q2

REPORT INFORMATION
  Report Type: 
  Country: None (occurrence: None)
  Receive Date: 20110505
  Receipt Date: 20110505
  Transmission Date: 20111010
  Serious: No
  Sender: FDA-Public Use
  Company Number: None

PATIENT
  Age: 15 Year
  Sex: Male

DRUGS (2)
  1. INTERFERON ALFA-2 PEGINTRAN [Suspect]
     Indication: PAPILLOMA VIRAL INFECTION
     Dosage: 120MCG WEEKLY SC
     Route: 058
     Dates: start: 20110224, end: 20110419
  2. INTERFERON ALFA-2 PEGINTRAN [Suspect]
     Indication: LUNG INFECTION
     Dosage: 120MCG WEEKLY SC
     Route: 058
     Dates: start: 20110224, end: 20110419

REACTIONS (1)
  - HEPATIC ENZYME INCREASED [None]
